FAERS Safety Report 7177041-7 (Version None)
Quarter: 2010Q4

REPORT INFORMATION
  Report Type: 
  Country: None (occurrence: None)
  Receive Date: 20101220
  Receipt Date: 20101207
  Transmission Date: 20110411
  Serious: Yes (Hospitalization, Other)
  Sender: FDA-Public Use
  Company Number: US-ELI_LILLY_AND_COMPANY-US201011002696

PATIENT
  Sex: Female
  Weight: 60.317 kg

DRUGS (8)
  1. ALIMTA [Suspect]
     Indication: NON-SMALL CELL LUNG CANCER
     Dosage: 800 MG, EVERY 3 WEEKS
     Route: 065
     Dates: start: 20091228, end: 20101028
  2. FOLIC ACID [Concomitant]
     Dosage: 1 MG, DAILY (1/D)
     Route: 048
  3. VITAMIN B-12 [Concomitant]
     Dosage: 1000 UG, UNK
     Route: 030
  4. ZOMETA [Concomitant]
     Dosage: 4 MG, MONTHLY (1/M)
     Route: 042
  5. ZOFRAN [Concomitant]
     Indication: PREMEDICATION
     Dosage: UNK, UNKNOWN
     Route: 065
  6. DECADRON [Concomitant]
     Dosage: 4 MG, UNK
     Route: 048
  7. PRILOSEC [Concomitant]
     Indication: REFLUX OESOPHAGITIS
  8. HYDROCHLOROTHIAZIDE [Concomitant]
     Indication: HYPERTENSION

REACTIONS (9)
  - DEHYDRATION [None]
  - DRUG TOXICITY [None]
  - HYPOPHAGIA [None]
  - MUCOSAL INFLAMMATION [None]
  - OEDEMA PERIPHERAL [None]
  - OESOPHAGITIS [None]
  - PANCYTOPENIA [None]
  - RENAL FAILURE [None]
  - WEIGHT DECREASED [None]
